FAERS Safety Report 18540287 (Version 1)
Quarter: 2020Q4

REPORT INFORMATION
  Report Type: Spontaneous
  Country: US (occurrence: US)
  Receive Date: 20201124
  Receipt Date: 20201124
  Transmission Date: 20210114
  Serious: Yes (Life-Threatening)
  Sender: FDA-Public Use
  Company Number: None

PATIENT
  Age: 31 Year
  Sex: Female
  Weight: 67.5 kg

DRUGS (4)
  1. PERRIGO ALBUTEROL SULFATE INHALATION AEROSOL [Suspect]
     Active Substance: ALBUTEROL SULFATE
     Indication: ASTHMA
     Dosage: ?          QUANTITY:200 INHALATION(S);?
     Route: 055
     Dates: start: 20200923, end: 20201123
  2. PERRIGO ALBUTEROL INHALER [Concomitant]
     Active Substance: ALBUTEROL
  3. VITAMIN D [Concomitant]
     Active Substance: VITAMIN D NOS
  4. BREO ELLIPTA [Concomitant]
     Active Substance: FLUTICASONE FUROATE\VILANTEROL TRIFENATATE

REACTIONS (3)
  - Loss of consciousness [None]
  - Device delivery system issue [None]
  - Asthma [None]

NARRATIVE: CASE EVENT DATE: 20201103
